FAERS Safety Report 6637755-1 (Version None)
Quarter: 2010Q1

REPORT INFORMATION
  Report Type: 
  Country: None (occurrence: None)
  Receive Date: 20100301
  Receipt Date: 20100119
  Transmission Date: 20100710
  Serious: Yes (Life-Threatening)
  Sender: FDA-Public Use
  Company Number: 004980

PATIENT
  Sex: Male
  Weight: 72.5 kg

DRUGS (3)
  1. LACOSAMIDE [Suspect]
     Indication: CONVULSION
     Dosage: 4 PILLS BID ORAL; SEE IMAGE
     Route: 048
     Dates: start: 20091001, end: 20090101
  2. LACOSAMIDE [Suspect]
     Indication: CONVULSION
     Dosage: 4 PILLS BID ORAL; SEE IMAGE
     Route: 048
     Dates: start: 20090101
  3. KLONOPIN [Concomitant]

REACTIONS (3)
  - AGITATION [None]
  - SUICIDAL IDEATION [None]
  - VISION BLURRED [None]
